FAERS Safety Report 10675688 (Version 2)
Quarter: 2014Q4

REPORT INFORMATION
  Report Type: Spontaneous
  Country: US (occurrence: US)
  Receive Date: 20141224
  Receipt Date: 20141224
  Transmission Date: 20150529
  Serious: Yes (Death, Other)
  Sender: FDA-Public Use
  Company Number: US-CUBIST PHARMACEUTICALS, INC.-2014CBST001606

PATIENT

DRUGS (141)
  1. FENTANYL. [Concomitant]
     Active Substance: FENTANYL
     Indication: PRODUCT USED FOR UNKNOWN INDICATION
     Dosage: 13.5 ?G, SINGLE
     Route: 042
     Dates: start: 20140903
  2. HYDROCORTISONE. [Concomitant]
     Active Substance: HYDROCORTISONE
     Dosage: 1.8 MG, Q6H
     Route: 042
     Dates: start: 20140901
  3. VERSED [Concomitant]
     Active Substance: MIDAZOLAM HYDROCHLORIDE
     Indication: PRODUCT USED FOR UNKNOWN INDICATION
     Dosage: 0.338 MG, SINGLE
     Route: 042
     Dates: start: 20140903
  4. POTASSIUM CHLORIDE. [Concomitant]
     Active Substance: POTASSIUM CHLORIDE
     Dosage: 3 MEQ, Q4H PRN
     Route: 042
     Dates: start: 20140905
  5. SODIUM BICARBONATE. [Concomitant]
     Active Substance: SODIUM BICARBONATE
     Dosage: 7 MEQ, SINGLE
     Route: 042
     Dates: start: 20140902
  6. SODIUM BICARBONATE. [Concomitant]
     Active Substance: SODIUM BICARBONATE
     Dosage: 20 MEQ, SINGLE
     Route: 042
     Dates: start: 20140903
  7. EPINEPHRINE. [Concomitant]
     Active Substance: EPINEPHRINE
     Dosage: 0.3 ?G/KG/MIN
     Route: 042
     Dates: start: 20140903
  8. FENTANYL. [Concomitant]
     Active Substance: FENTANYL
     Dosage: 1.5 ?G/KG, SINGLE
     Route: 042
     Dates: start: 20140830
  9. HEPARIN [Concomitant]
     Active Substance: HEPARIN SODIUM
     Dosage: 96.1539 UNIT/KG/HR
     Route: 042
     Dates: start: 20140904
  10. KETAMINE [Concomitant]
     Active Substance: KETAMINE
     Dosage: 1.5 MG/KG/HR
     Route: 042
     Dates: start: 20140904
  11. ALBUMIN HUMAN [Concomitant]
     Active Substance: ALBUMIN (HUMAN)
     Dosage: 3.375 MG, Q8H
     Route: 042
     Dates: start: 20140903
  12. CALCIUM CHLORIDE. [Concomitant]
     Active Substance: CALCIUM CHLORIDE
     Indication: PRODUCT USED FOR UNKNOWN INDICATION
     Dosage: 1 DF, SINGLE
     Route: 042
     Dates: start: 20140903
  13. DIURIL                             /00011801/ [Concomitant]
     Dosage: 10 MG, Q12H
     Route: 042
     Dates: start: 20140905
  14. FENTANYL. [Concomitant]
     Active Substance: FENTANYL
     Dosage: 7 ?G, SINGLE
     Route: 042
     Dates: start: 20140903
  15. HYDROCORTISONE. [Concomitant]
     Active Substance: HYDROCORTISONE
     Dosage: 1.8 MG, Q6H
     Route: 042
     Dates: start: 20140831
  16. KETAMINE [Concomitant]
     Active Substance: KETAMINE
     Indication: PRODUCT USED FOR UNKNOWN INDICATION
     Dosage: 5.25 MG, SINGLE
     Route: 042
     Dates: start: 20140901
  17. KETAMINE [Concomitant]
     Active Substance: KETAMINE
     Dosage: 6.75 MG, SINGLE
     Route: 042
     Dates: start: 20140903
  18. LINEZOLID. [Concomitant]
     Active Substance: LINEZOLID
     Indication: PRODUCT USED FOR UNKNOWN INDICATION
     Dosage: 34 MG, Q8H
     Route: 042
     Dates: start: 20140903, end: 20140904
  19. MORPHINE [Concomitant]
     Active Substance: MORPHINE
     Indication: PRODUCT USED FOR UNKNOWN INDICATION
     Dosage: 0.34 MG, Q2H PRN
     Route: 042
     Dates: start: 20140830
  20. ROCURONIUM [Concomitant]
     Active Substance: ROCURONIUM BROMIDE
     Dosage: 3.38 MG, SINGLE
     Route: 042
     Dates: start: 20140901
  21. DEXTROSE IN WATER [Concomitant]
     Dosage: 50 ML, SINGLE
     Route: 042
     Dates: start: 20140902
  22. DOPAMINE [Concomitant]
     Active Substance: DOPAMINE\DOPAMINE HYDROCHLORIDE
     Dosage: 2 ?G/KG/MIN
     Route: 042
     Dates: start: 20140830
  23. EPINEPHRINE. [Concomitant]
     Active Substance: EPINEPHRINE
     Dosage: 0.15 ?G/KG/MIN
     Route: 042
     Dates: start: 20140903
  24. EPINEPHRINE. [Concomitant]
     Active Substance: EPINEPHRINE
     Dosage: 0.3 ?G/KG/MIN
     Route: 042
     Dates: start: 20140903
  25. FENTANYL. [Concomitant]
     Active Substance: FENTANYL
     Dosage: 2 ?G/KG, SINGLE
     Route: 042
     Dates: start: 20140831
  26. FENTANYL. [Concomitant]
     Active Substance: FENTANYL
     Dosage: 2.515 ?G/KG, SINGLE
     Route: 042
     Dates: start: 20140901, end: 20140901
  27. FENTANYL. [Concomitant]
     Active Substance: FENTANYL
     Dosage: 2.515 ?G/KG, SINGLE
     Route: 042
     Dates: start: 20140902
  28. KETAMINE [Concomitant]
     Active Substance: KETAMINE
     Dosage: 1.5 MG/KG/HR
     Route: 042
     Dates: start: 20140903
  29. PARENTERAL [Concomitant]
     Indication: PRODUCT USED FOR UNKNOWN INDICATION
     Dosage: 10 ML/HR,
     Route: 042
     Dates: start: 20140825, end: 20140903
  30. SILDENAFIL. [Concomitant]
     Active Substance: SILDENAFIL
     Indication: PRODUCT USED FOR UNKNOWN INDICATION
     Dosage: 0.6 MG/KG/DAY
     Route: 042
     Dates: start: 20140831, end: 20140902
  31. CUBICIN [Suspect]
     Active Substance: DAPTOMYCIN
     Indication: STAPHYLOCOCCAL BACTERAEMIA
     Dosage: 10 MG/KG, Q24H
     Route: 042
     Dates: start: 20140905, end: 20140912
  32. FENTANYL. [Concomitant]
     Active Substance: FENTANYL
     Dosage: 3 ?G, SINGLE
     Route: 042
     Dates: start: 20140903
  33. HEPARIN [Concomitant]
     Active Substance: HEPARIN SODIUM
     Indication: PRODUCT USED FOR UNKNOWN INDICATION
     Dosage: 100 UT, SINGLE
     Route: 042
     Dates: start: 20140903
  34. HEPARIN [Concomitant]
     Active Substance: HEPARIN SODIUM
     Dosage: 170 UT, PRN
     Route: 042
     Dates: start: 20140903
  35. HYDROCORTISONE. [Concomitant]
     Active Substance: HYDROCORTISONE
     Dosage: 1.4 MG, Q6H
     Route: 042
     Dates: start: 20140830
  36. HYDROCORTISONE. [Concomitant]
     Active Substance: HYDROCORTISONE
     Dosage: 1.8 MG, Q6H
     Route: 042
     Dates: start: 20140902
  37. ROCURONIUM [Concomitant]
     Active Substance: ROCURONIUM BROMIDE
     Indication: PRODUCT USED FOR UNKNOWN INDICATION
     Dosage: 3.4 MG, SINGLE
     Route: 042
     Dates: start: 20140830
  38. SODIUM BICARBONATE. [Concomitant]
     Active Substance: SODIUM BICARBONATE
     Dosage: 6.76 MEQ, SINGLE
     Route: 042
     Dates: start: 20140903
  39. BENADRYL [Concomitant]
     Active Substance: DIPHENHYDRAMINE HYDROCHLORIDE
     Indication: PRODUCT USED FOR UNKNOWN INDICATION
     Dosage: 3 MG, SINGLE, PRN
     Route: 042
     Dates: start: 20140831
  40. BENADRYL [Concomitant]
     Active Substance: DIPHENHYDRAMINE HYDROCHLORIDE
     Dosage: 3 MG, SINGLE, PRN
     Route: 042
     Dates: start: 20140903
  41. LACRI-LUBE S.O.P. [Concomitant]
     Indication: PRODUCT USED FOR UNKNOWN INDICATION
     Dosage: 1 APPLICATION, Q1H PRN
     Route: 047
     Dates: start: 20140902, end: 20140903
  42. DEXMEDETOMIDINE [Concomitant]
     Active Substance: DEXMEDETOMIDINE
     Dosage: 0.2 ?G/KG/HR
     Route: 042
     Dates: start: 20140831
  43. DOPAMINE [Concomitant]
     Active Substance: DOPAMINE\DOPAMINE HYDROCHLORIDE
     Dosage: 3 ?G/KG/MIN
     Route: 042
     Dates: start: 20140830
  44. EPINEPHRINE. [Concomitant]
     Active Substance: EPINEPHRINE
     Dosage: 0.3 ?G/KG/MIN
     Route: 042
     Dates: start: 20140903
  45. EPINEPHRINE. [Concomitant]
     Active Substance: EPINEPHRINE
     Dosage: 0.4 ?G/KG/MIN
     Route: 042
     Dates: start: 20140903
  46. FENTANYL. [Concomitant]
     Active Substance: FENTANYL
     Dosage: 2 ?G/KG, SINGLE
     Route: 042
     Dates: start: 20140905
  47. HEPARIN [Concomitant]
     Active Substance: HEPARIN SODIUM
     Dosage: 88.7575 UNIT/KG/HR
     Route: 042
     Dates: start: 20140904
  48. KETAMINE [Concomitant]
     Active Substance: KETAMINE
     Dosage: 0.75 MG/KG/HR
     Route: 042
     Dates: start: 20140901
  49. KETAMINE [Concomitant]
     Active Substance: KETAMINE
     Dosage: 0 MG/KG/HR
     Route: 042
     Dates: start: 20140905
  50. PARENTERAL [Concomitant]
     Indication: PRODUCT USED FOR UNKNOWN INDICATION
     Dosage: 7.5 ML/HR, QD
     Route: 042
     Dates: start: 20140903, end: 20140908
  51. ROCURONIUM [Concomitant]
     Active Substance: ROCURONIUM BROMIDE
     Dosage: 9.8619 ?G/KG/MIN
     Route: 042
     Dates: start: 20140902
  52. VANCOMYCIN [Suspect]
     Active Substance: VANCOMYCIN
     Indication: ENDOCARDITIS STAPHYLOCOCCAL
     Dosage: UNK, UNK, UNK
     Route: 042
     Dates: start: 20140904, end: 20140911
  53. ANTITHROMBIN III [Concomitant]
     Active Substance: ANTITHROMBIN III HUMAN
     Indication: PRODUCT USED FOR UNKNOWN INDICATION
     Dosage: 1 DF, SINGLE
     Route: 042
     Dates: start: 20140905
  54. FENTANYL. [Concomitant]
     Active Substance: FENTANYL
     Dosage: 3.4 ?G, Q1H PRN
     Route: 042
     Dates: start: 20140830, end: 20140831
  55. HEPARIN [Concomitant]
     Active Substance: HEPARIN SODIUM
     Dosage: 85 UT, PRN
     Route: 042
     Dates: start: 20140904
  56. HYDROCORTISONE. [Concomitant]
     Active Substance: HYDROCORTISONE
     Indication: PRODUCT USED FOR UNKNOWN INDICATION
     Dosage: 2.8 MG, Q6H
     Route: 042
     Dates: start: 20140830
  57. HYDROCORTISONE. [Concomitant]
     Active Substance: HYDROCORTISONE
     Dosage: 2.8 MG, Q6H
     Route: 042
     Dates: start: 20140830
  58. HYDROCORTISONE. [Concomitant]
     Active Substance: HYDROCORTISONE
     Dosage: 1.8 MG, Q6H
     Route: 042
     Dates: start: 20140903
  59. HYDROCORTISONE. [Concomitant]
     Active Substance: HYDROCORTISONE
     Dosage: 2.7 MG, Q6H
     Route: 042
     Dates: start: 20140904
  60. ROCURONIUM [Concomitant]
     Active Substance: ROCURONIUM BROMIDE
     Dosage: 3.38 MG, SINGLE
     Route: 042
     Dates: start: 20140901
  61. DEXMEDETOMIDINE [Concomitant]
     Active Substance: DEXMEDETOMIDINE
     Indication: PRODUCT USED FOR UNKNOWN INDICATION
     Dosage: 0.3 ?G/KG/HR
     Route: 042
     Dates: start: 20140830
  62. DEXMEDETOMIDINE [Concomitant]
     Active Substance: DEXMEDETOMIDINE
     Dosage: 0.4 ?G/KG/HR
     Route: 042
     Dates: start: 20140831
  63. DOPAMINE [Concomitant]
     Active Substance: DOPAMINE\DOPAMINE HYDROCHLORIDE
     Dosage: 3.8 ?G/KG/MIN
     Route: 042
     Dates: start: 20140830
  64. EPINEPHRINE. [Concomitant]
     Active Substance: EPINEPHRINE
     Indication: PRODUCT USED FOR UNKNOWN INDICATION
     Dosage: 0.025 ?G/KG/MIN
     Route: 042
     Dates: start: 20140903
  65. EPINEPHRINE. [Concomitant]
     Active Substance: EPINEPHRINE
     Dosage: 0.1 ?G/KG/MIN
     Route: 042
     Dates: start: 20140903
  66. EPINEPHRINE. [Concomitant]
     Active Substance: EPINEPHRINE
     Dosage: 0.4 ?G/KG/MIN
     Route: 042
     Dates: start: 20140903
  67. EPINEPHRINE. [Concomitant]
     Active Substance: EPINEPHRINE
     Dosage: 0.4 ?G/KG/MIN
     Route: 042
     Dates: start: 20140903
  68. EPINEPHRINE. [Concomitant]
     Active Substance: EPINEPHRINE
     Dosage: 0 ?G/KG/MIN
     Route: 042
     Dates: start: 20140903
  69. FENTANYL. [Concomitant]
     Active Substance: FENTANYL
     Dosage: 2 ?G/KG, SINGLE
     Route: 042
     Dates: start: 20140904
  70. MIDAZOLAM [Concomitant]
     Active Substance: MIDAZOLAM\MIDAZOLAM HYDROCHLORIDE
     Indication: PRODUCT USED FOR UNKNOWN INDICATION
     Dosage: 0.2 MG/KG/HR, Q24H
     Route: 042
     Dates: start: 20140818
  71. MILRINONE [Concomitant]
     Active Substance: MILRINONE
     Dosage: 0.5 ?G/KG/MIN
     Route: 042
     Dates: start: 20140903
  72. CUBICIN [Suspect]
     Active Substance: DAPTOMYCIN
     Indication: ENDOCARDITIS STAPHYLOCOCCAL
     Dosage: 34 MG, Q24H
     Route: 042
     Dates: start: 20140905, end: 20140912
  73. CUBICIN [Suspect]
     Active Substance: DAPTOMYCIN
     Indication: OFF LABEL USE
  74. VANCOMYCIN [Suspect]
     Active Substance: VANCOMYCIN
     Indication: STAPHYLOCOCCAL BACTERAEMIA
  75. LASIX [Concomitant]
     Active Substance: FUROSEMIDE
     Dosage: 4 MG, SINGLE
     Route: 042
     Dates: start: 20140902
  76. HYDROCORTISONE. [Concomitant]
     Active Substance: HYDROCORTISONE
     Dosage: 2.7 MG, Q6H
     Route: 042
     Dates: start: 20140905
  77. MEROPENEM. [Concomitant]
     Active Substance: MEROPENEM
     Indication: PRODUCT USED FOR UNKNOWN INDICATION
     Dosage: 70 MG, Q8H
     Route: 042
     Dates: start: 20140903, end: 20140904
  78. MORPHINE [Concomitant]
     Active Substance: MORPHINE
     Dosage: 0.4 MG, Q2H
     Route: 042
     Dates: start: 20140831
  79. POTASSIUM CHLORIDE. [Concomitant]
     Active Substance: POTASSIUM CHLORIDE
     Dosage: 3 MEQ, Q4H PRN
     Route: 042
     Dates: start: 20140904
  80. TROMETHAMINE. [Concomitant]
     Active Substance: TROMETHAMINE
     Indication: PRODUCT USED FOR UNKNOWN INDICATION
     Dosage: 50 ML, SINGLE
     Route: 042
     Dates: start: 20140903
  81. DEXTROSE IN WATER [Concomitant]
     Dosage: 0 ML, Q1H
     Route: 042
     Dates: start: 20140903
  82. DOPAMINE [Concomitant]
     Active Substance: DOPAMINE\DOPAMINE HYDROCHLORIDE
     Indication: PRODUCT USED FOR UNKNOWN INDICATION
     Dosage: 3.9 ?G/KG/MIN
     Route: 042
     Dates: start: 20140830
  83. EPINEPHRINE. [Concomitant]
     Active Substance: EPINEPHRINE
     Dosage: 0.25 ?G/KG/MIN
     Route: 042
     Dates: start: 20140903
  84. FENTANYL. [Concomitant]
     Active Substance: FENTANYL
     Indication: PRODUCT USED FOR UNKNOWN INDICATION
     Dosage: 1 ?G/KG, SINGLE
     Route: 042
     Dates: start: 20140830
  85. INTRALIPID [Concomitant]
     Active Substance: EGG PHOSPHOLIPIDS\GLYCERIN\SOYBEAN OIL
     Indication: PRODUCT USED FOR UNKNOWN INDICATION
     Dosage: 33.6 ML (INFUSE OVER 24 HR), Q24H
     Route: 042
     Dates: start: 20140819
  86. KETAMINE [Concomitant]
     Active Substance: KETAMINE
     Indication: PRODUCT USED FOR UNKNOWN INDICATION
     Dosage: 0.5 MG/KG/HR
     Route: 042
     Dates: start: 20140901
  87. MILRINONE [Concomitant]
     Active Substance: MILRINONE
     Dosage: 0.5 ?G/KG/ MIN
     Route: 042
     Dates: start: 20140903
  88. ROCURONIUM [Concomitant]
     Active Substance: ROCURONIUM BROMIDE
     Indication: PRODUCT USED FOR UNKNOWN INDICATION
     Dosage: 7 ?G/KG/MIN
     Route: 042
     Dates: start: 20140901
  89. ROCURONIUM [Concomitant]
     Active Substance: ROCURONIUM BROMIDE
     Dosage: 9.8619 ?G/KG/MIN
     Route: 042
     Dates: start: 20140903
  90. FENTANYL. [Concomitant]
     Active Substance: FENTANYL
     Dosage: 4 ?G, Q2H PRN
     Route: 042
     Dates: start: 20140901, end: 20140903
  91. LASIX [Concomitant]
     Active Substance: FUROSEMIDE
     Indication: PRODUCT USED FOR UNKNOWN INDICATION
     Dosage: 3 MG, Q12H
     Route: 042
     Dates: start: 20140831
  92. HYDROCORTISONE. [Concomitant]
     Active Substance: HYDROCORTISONE
     Dosage: 1.4 MG, Q6H
     Route: 042
     Dates: start: 20140831
  93. HYDROCORTISONE. [Concomitant]
     Active Substance: HYDROCORTISONE
     Dosage: 2.7 MG, Q6H
     Route: 042
     Dates: start: 20140903
  94. MORPHINE [Concomitant]
     Active Substance: MORPHINE
     Dosage: 0.169 MG, SINGLE
     Route: 042
     Dates: start: 20140903
  95. POTASSIUM CHLORIDE. [Concomitant]
     Active Substance: POTASSIUM CHLORIDE
     Indication: PRODUCT USED FOR UNKNOWN INDICATION
     Dosage: 3.4 MEQ, SINGLE
     Route: 042
     Dates: start: 20140904
  96. POTASSIUM CHLORIDE. [Concomitant]
     Active Substance: POTASSIUM CHLORIDE
     Dosage: 3.4 MEQ, SINGLE
     Route: 042
     Dates: start: 20140904
  97. SILDENAFIL. [Concomitant]
     Active Substance: SILDENAFIL
     Indication: PRODUCT USED FOR UNKNOWN INDICATION
     Dosage: 0.875 MG, Q6H
     Route: 048
     Dates: start: 20140830, end: 20140831
  98. BENADRYL [Concomitant]
     Active Substance: DIPHENHYDRAMINE HYDROCHLORIDE
     Dosage: 3 MG, SINGLE, PRN
     Route: 042
     Dates: start: 20140901
  99. ATIVAN [Concomitant]
     Active Substance: LORAZEPAM
     Indication: PRODUCT USED FOR UNKNOWN INDICATION
     Dosage: 0.34 MG, Q2H, PRN
     Route: 042
     Dates: start: 20140830, end: 20140831
  100. ATIVAN [Concomitant]
     Active Substance: LORAZEPAM
     Dosage: 0.4 MG, Q2H PRN
     Route: 042
     Dates: start: 20140831, end: 20140903
  101. ATIVAN [Concomitant]
     Active Substance: LORAZEPAM
     Dosage: 0.4 MG, SINGLE
     Route: 042
     Dates: start: 20140905
  102. BUMETANIDE. [Concomitant]
     Active Substance: BUMETANIDE
     Dosage: 10 ?G/KG/HR
     Route: 042
     Dates: start: 20140905
  103. DEXMEDETOMIDINE [Concomitant]
     Active Substance: DEXMEDETOMIDINE
     Dosage: 0.4 ?G/KG/HR
     Route: 042
     Dates: start: 20140831
  104. EPINEPHRINE. [Concomitant]
     Active Substance: EPINEPHRINE
     Dosage: 0.3 ?G/KG/MIN
     Route: 042
     Dates: start: 20140903
  105. EPINEPHRINE. [Concomitant]
     Active Substance: EPINEPHRINE
     Dosage: 0.2 ?G/KG/MIN
     Route: 042
     Dates: start: 20140903
  106. EPINEPHRINE. [Concomitant]
     Active Substance: EPINEPHRINE
     Dosage: 0.2 ?G/KG/MIN
     Route: 042
     Dates: start: 20140903
  107. FENTANYL. [Concomitant]
     Active Substance: FENTANYL
     Dosage: 2 ?G/KG, SINGLE
     Route: 042
     Dates: start: 20140831
  108. HEPARIN [Concomitant]
     Active Substance: HEPARIN SODIUM
     Indication: PRODUCT USED FOR UNKNOWN INDICATION
     Dosage: 2 UT/HR
     Route: 013
     Dates: start: 20140901
  109. HEPARIN [Concomitant]
     Active Substance: HEPARIN SODIUM
     Dosage: 2 UT/HR
     Route: 013
     Dates: start: 20140905
  110. MILRINONE [Concomitant]
     Active Substance: MILRINONE
     Dosage: 0.5 ?G/KG/MIN
     Route: 042
     Dates: start: 20140902
  111. ALBUMIN HUMAN [Concomitant]
     Active Substance: ALBUMIN (HUMAN)
     Indication: PRODUCT USED FOR UNKNOWN INDICATION
     Dosage: 3.375 MG, Q8H
     Route: 042
     Dates: start: 20140903
  112. HEPARIN [Concomitant]
     Active Substance: HEPARIN SODIUM
     Dosage: 170 UT, PRN
     Route: 042
     Dates: start: 20140903
  113. HEPARIN FLUSH [Concomitant]
     Indication: PRODUCT USED FOR UNKNOWN INDICATION
     Dosage: 200 UT, SINGLE
     Route: 042
     Dates: start: 20140903
  114. VERSED [Concomitant]
     Active Substance: MIDAZOLAM HYDROCHLORIDE
     Dosage: 0.17 MG, Q2H PRN
     Route: 042
     Dates: start: 20140831
  115. ROCURONIUM [Concomitant]
     Active Substance: ROCURONIUM BROMIDE
     Dosage: 3.5 MG, SINGLE
     Route: 042
     Dates: start: 20140903
  116. SILDENAFIL. [Concomitant]
     Active Substance: SILDENAFIL
     Indication: PRODUCT USED FOR UNKNOWN INDICATION
     Dosage: 0.875 MG, SINGLE
     Route: 048
     Dates: start: 20140830
  117. BUMETANIDE. [Concomitant]
     Active Substance: BUMETANIDE
     Dosage: 5 ?G/KG/HR
     Route: 042
     Dates: start: 20140904
  118. BUMETANIDE. [Concomitant]
     Active Substance: BUMETANIDE
     Dosage: 10 ?G/KG/HR
     Route: 042
     Dates: start: 20140904
  119. DEXTROSE IN WATER [Concomitant]
     Indication: PRODUCT USED FOR UNKNOWN INDICATION
     Dosage: 50 ML, SINGLE
     Route: 042
     Dates: start: 20140831
  120. DOPAMINE [Concomitant]
     Active Substance: DOPAMINE\DOPAMINE HYDROCHLORIDE
     Dosage: 3.7 ?G/KG/MIN
     Route: 042
     Dates: start: 20140830
  121. EPINEPHRINE. [Concomitant]
     Active Substance: EPINEPHRINE
     Dosage: 0.5 ?G/KG/MIN
     Route: 042
     Dates: start: 20140903
  122. FENTANYL. [Concomitant]
     Active Substance: FENTANYL
     Dosage: 2.5 ?G/KG, SINGLE
     Route: 042
     Dates: start: 20140903
  123. KETAMINE [Concomitant]
     Active Substance: KETAMINE
     Dosage: 1.5 MG/KG/HR
     Route: 042
     Dates: start: 20140902
  124. MILRINONE [Concomitant]
     Active Substance: MILRINONE
     Indication: PRODUCT USED FOR UNKNOWN INDICATION
     Dosage: 0.25 ?G/KG/MIN
     Route: 042
     Dates: start: 20140902
  125. ALBUMIN HUMAN [Concomitant]
     Active Substance: ALBUMIN (HUMAN)
     Dosage: 50 G, SINGLE
     Route: 042
     Dates: start: 20140903
  126. ALBUMIN HUMAN [Concomitant]
     Active Substance: ALBUMIN (HUMAN)
     Indication: PRODUCT USED FOR UNKNOWN INDICATION
     Dosage: 1.75 G, SINGLE
     Route: 042
     Dates: start: 20140904
  127. DIURIL                             /00011801/ [Concomitant]
     Indication: PRODUCT USED FOR UNKNOWN INDICATION
     Dosage: 10 MG, Q12H
     Route: 042
     Dates: start: 20140905
  128. DEXTROSE IN WATER [Concomitant]
     Indication: PRODUCT USED FOR UNKNOWN INDICATION
     Dosage: 14 ML, SINGLE
     Route: 042
     Dates: start: 20140904
  129. FAMOTIDINE. [Concomitant]
     Active Substance: FAMOTIDINE
     Indication: PRODUCT USED FOR UNKNOWN INDICATION
     Dosage: 1.7 MG, Q24H
     Route: 042
     Dates: start: 20140819, end: 20140903
  130. FAMOTIDINE. [Concomitant]
     Active Substance: FAMOTIDINE
     Dosage: 1.7 MG, Q24H
     Route: 042
     Dates: start: 20140905
  131. HYDROCORTISONE. [Concomitant]
     Active Substance: HYDROCORTISONE
     Dosage: 1.4 MG, Q6H
     Route: 042
     Dates: start: 20140831
  132. SODIUM BICARBONATE. [Concomitant]
     Active Substance: SODIUM BICARBONATE
     Indication: PRODUCT USED FOR UNKNOWN INDICATION
     Dosage: 3.38 MEQ, SINGLE
     Route: 042
     Dates: start: 20140901
  133. BUMETANIDE. [Concomitant]
     Active Substance: BUMETANIDE
     Indication: PRODUCT USED FOR UNKNOWN INDICATION
     Dosage: 2.5 ?G/KG/HR
     Route: 042
     Dates: start: 20140904
  134. DEXMEDETOMIDINE [Concomitant]
     Active Substance: DEXMEDETOMIDINE
     Dosage: 0.4 ?G/KG/HR
     Route: 042
     Dates: start: 20140831
  135. EPINEPHRINE. [Concomitant]
     Active Substance: EPINEPHRINE
     Dosage: 0.25 ?G/KG/MIN
     Route: 042
     Dates: start: 20140903
  136. EPINEPHRINE. [Concomitant]
     Active Substance: EPINEPHRINE
     Dosage: 0.15 ?G/KG/MIN
     Route: 042
     Dates: start: 20140903
  137. FENTANYL. [Concomitant]
     Active Substance: FENTANYL
     Dosage: 2.515 ?G/KG, SINGLE
     Route: 042
     Dates: start: 20140902
  138. HEPARIN [Concomitant]
     Active Substance: HEPARIN SODIUM
     Indication: PRODUCT USED FOR UNKNOWN INDICATION
     Dosage: 18 UNIT/KG/HR
     Route: 042
     Dates: start: 20140904
  139. HEPARIN [Concomitant]
     Active Substance: HEPARIN SODIUM
     Dosage: 73.9646 UNIT/KG/HR
     Route: 042
     Dates: start: 20140904
  140. NICARDIPINE [Concomitant]
     Active Substance: NICARDIPINE
     Indication: PRODUCT USED FOR UNKNOWN INDICATION
     Dosage: 1 ?G/KG/MIN
     Route: 042
     Dates: start: 20140903
  141. ROCURONIUM [Concomitant]
     Active Substance: ROCURONIUM BROMIDE
     Dosage: 9.8619 ?G/KG/MIN
     Route: 042
     Dates: start: 20140904

REACTIONS (8)
  - Hypoxic-ischaemic encephalopathy [Fatal]
  - Cardiac arrest [Unknown]
  - Hyperbilirubinaemia [Not Recovered/Not Resolved]
  - Off label use [Unknown]
  - Pulmonary hypertension [Fatal]
  - Haemorrhage intracranial [Fatal]
  - Sepsis [Fatal]
  - Congenital diaphragmatic hernia [Fatal]

NARRATIVE: CASE EVENT DATE: 20141008
